FAERS Safety Report 8999978 (Version 1)
Quarter: 2013Q1

REPORT INFORMATION
  Report Type: Spontaneous
  Country: FR (occurrence: FR)
  Receive Date: 20130102
  Receipt Date: 20130102
  Transmission Date: 20140127
  Serious: Yes (Hospitalization)
  Sender: FDA-Public Use
  Company Number: FR-SANOFI-AVENTIS-2012SA095894

PATIENT
  Age: 84 Year
  Sex: Female

DRUGS (15)
  1. TAVANIC [Suspect]
     Indication: LUNG DISORDER
     Route: 065
     Dates: start: 201206, end: 201206
  2. COLIMYCINE [Suspect]
     Indication: LUNG DISORDER
     Dosage: DOSE:212 UNIT(S)
     Route: 055
     Dates: start: 20120621
  3. LASILIX [Suspect]
     Indication: PRODUCT USED FOR UNKNOWN INDICATION
     Dosage: DOSE:1 UNIT(S)
     Route: 048
  4. AUGMENTIN [Suspect]
     Indication: COUGH
     Route: 048
  5. ROCEPHINE [Suspect]
     Indication: LUNG DISORDER
     Route: 065
     Dates: start: 201206, end: 201206
  6. FORTUM [Suspect]
     Indication: LUNG DISORDER
     Route: 048
     Dates: start: 201206, end: 201206
  7. CIFLOX [Suspect]
     Indication: LUNG DISORDER
     Route: 048
     Dates: start: 201206, end: 201206
  8. AZITHROMYCIN [Suspect]
     Indication: LUNG DISORDER
     Route: 065
     Dates: start: 20120621
  9. ATACAND [Suspect]
     Indication: PRODUCT USED FOR UNKNOWN INDICATION
     Dosage: DOSE:1 UNIT(S)
     Route: 065
  10. ATARAX [Suspect]
     Indication: PRODUCT USED FOR UNKNOWN INDICATION
     Route: 048
  11. TERBUTALINE [Suspect]
     Indication: LUNG DISORDER
     Route: 055
  12. IPRATROPIUM [Suspect]
     Indication: LUNG DISORDER
     Route: 055
  13. SERETIDE [Concomitant]
     Dosage: DOSE:2 UNIT(S)
  14. FLECAINE [Concomitant]
     Dosage: DOSE:1 UNIT(S)
  15. PREVISCAN [Concomitant]
     Indication: ATRIAL FIBRILLATION
     Dosage: DOSE:1 UNIT(S)

REACTIONS (4)
  - Hepatitis cholestatic [Not Recovered/Not Resolved]
  - Renal failure acute [Recovered/Resolved with Sequelae]
  - Hyperkalaemia [Unknown]
  - Renal tubular necrosis [Unknown]
